FAERS Safety Report 13113380 (Version 1)
Quarter: 2017Q1

REPORT INFORMATION
  Report Type: Spontaneous
  Country: FR (occurrence: FR)
  Receive Date: 20170113
  Receipt Date: 20170113
  Transmission Date: 20170428
  Serious: Yes (Hospitalization, Other)
  Sender: FDA-Public Use
  Company Number: FR-009507513-1701FRA003499

PATIENT
  Sex: Male
  Weight: 84 kg

DRUGS (3)
  1. NOVO-NORM [Concomitant]
     Active Substance: REPAGLINIDE
     Dosage: 3 DF, QD
     Dates: start: 201607
  2. DIAMICRON [Concomitant]
     Active Substance: GLICLAZIDE
     Indication: TYPE 2 DIABETES MELLITUS
     Dosage: UNK
     Dates: start: 2006, end: 201607
  3. JANUMET [Suspect]
     Active Substance: METFORMIN HYDROCHLORIDE\SITAGLIPTIN PHOSPHATE
     Indication: TYPE 2 DIABETES MELLITUS
     Dosage: UNK
     Route: 048
     Dates: start: 2006, end: 201607

REACTIONS (3)
  - Gout [Unknown]
  - Microalbuminuria [Unknown]
  - Renal failure [Unknown]

NARRATIVE: CASE EVENT DATE: 2016
